FAERS Safety Report 6245563-9 (Version None)
Quarter: 2009Q2

REPORT INFORMATION
  Report Type: 
  Country: None (occurrence: None)
  Receive Date: 20090625
  Receipt Date: 20090617
  Transmission Date: 20091009
  Serious: Yes (Hospitalization, Other)
  Sender: FDA-Public Use
  Company Number: JP-NOVOPROD-288458

PATIENT
  Age: 59 Year
  Sex: Female
  Weight: 48.7 kg

DRUGS (2)
  1. NOVORAPID 30 MIX CHU [Suspect]
     Indication: TYPE 2 DIABETES MELLITUS
     Dosage: 18+0+6 IU, QD
     Route: 058
     Dates: end: 20080801
  2. NOVORAPID 30 MIX CHU [Suspect]
     Dosage: 20+0+6 IU, QD
     Route: 058
     Dates: start: 20080801

REACTIONS (2)
  - DISORIENTATION [None]
  - HYPOGLYCAEMIA [None]
